FAERS Safety Report 15468003 (Version 1)
Quarter: 2018Q4

REPORT INFORMATION
  Report Type: Spontaneous
  Country: US (occurrence: US)
  Receive Date: 20181002
  Receipt Date: 20181002
  Transmission Date: 20190204
  Serious: Yes (Hospitalization)
  Sender: FDA-Public Use
  Company Number: None

PATIENT
  Age: 26 Year
  Sex: Female

DRUGS (4)
  1. BOTOX [Suspect]
     Active Substance: ONABOTULINUMTOXINA
     Indication: MIGRAINE
     Dosage: ?          OTHER DOSE:100 MIU;OTHER FREQUENCY:Q12W;?
     Route: 030
     Dates: start: 20180628
  2. CARAFATE [Concomitant]
     Active Substance: SUCRALFATE
  3. LEVOFLOXACIN. [Concomitant]
     Active Substance: LEVOFLOXACIN
  4. OXYCOD/ APAP [Concomitant]

REACTIONS (2)
  - Pneumonia [None]
  - Cholecystectomy [None]

NARRATIVE: CASE EVENT DATE: 20180924
